FAERS Safety Report 19225062 (Version 3)
Quarter: 2021Q3

REPORT INFORMATION
  Report Type: Report from Study
  Country: AR (occurrence: AR)
  Receive Date: 20210506
  Receipt Date: 20210713
  Transmission Date: 20211014
  Serious: Yes (Hospitalization, Other)
  Sender: FDA-Public Use
  Company Number: NVSC2021AR099065

PATIENT
  Age: 66 Year
  Sex: Male

DRUGS (10)
  1. PRADAXA [Concomitant]
     Active Substance: DABIGATRAN ETEXILATE MESYLATE
     Indication: COAGULOPATHY
     Dosage: 2 DF, QD
     Route: 065
  2. ENTRESTO [Suspect]
     Active Substance: SACUBITRIL\VALSARTAN
     Dosage: 0.5 DF, BID, HALF TABLET IN THE MORNING AND HALF TABLET AT NIGHT
     Route: 065
  3. CORBIS [Concomitant]
     Active Substance: BISOPROLOL FUMARATE
     Indication: CARDIAC FAILURE
     Dosage: 0.5 DF, BID (IN THE MORNING AND AT NIGHT)
     Route: 065
  4. AMIODARONE [Concomitant]
     Active Substance: AMIODARONE
     Indication: ARRHYTHMIA
     Dosage: 1 DF, QD
     Route: 065
  5. ENTRESTO [Suspect]
     Active Substance: SACUBITRIL\VALSARTAN
     Dosage: 1 DF, QD
     Route: 065
  6. DIOVAN [Suspect]
     Active Substance: VALSARTAN
     Indication: ARRHYTHMIA
     Dosage: 2 DF, QD
     Route: 048
     Dates: start: 2017, end: 20210410
  7. DIOVAN [Suspect]
     Active Substance: VALSARTAN
     Indication: HYPERTENSION
  8. ENTRESTO [Suspect]
     Active Substance: SACUBITRIL\VALSARTAN
     Indication: PRODUCT USED FOR UNKNOWN INDICATION
     Dosage: 2 DF, QD
     Route: 065
     Dates: start: 20210414
  9. ALDACTONE [Concomitant]
     Active Substance: SPIRONOLACTONE
     Indication: HYPERTENSION
     Dosage: 0.5 DF, QD
     Route: 065
  10. VILDAGLIPTIN [Concomitant]
     Active Substance: VILDAGLIPTIN
     Indication: DIABETES MELLITUS
     Dosage: 2 DF, QD
     Route: 065

REACTIONS (14)
  - Blood pressure increased [Unknown]
  - Pulmonary oedema [Unknown]
  - Weight decreased [Recovering/Resolving]
  - Product dose omission issue [Recovering/Resolving]
  - Choking [Recovering/Resolving]
  - Malaise [Unknown]
  - Somnolence [Recovering/Resolving]
  - Wrong technique in product usage process [Unknown]
  - Oedema peripheral [Unknown]
  - Drug ineffective [Recovering/Resolving]
  - Arrhythmia [Unknown]
  - Respiratory disorder [Unknown]
  - Blood pressure fluctuation [Recovering/Resolving]
  - Off label use [Recovering/Resolving]

NARRATIVE: CASE EVENT DATE: 20210412
